FAERS Safety Report 10062267 (Version 4)
Quarter: 2014Q2

REPORT INFORMATION
  Report Type: Report from Study
  Country: US (occurrence: US)
  Receive Date: 20140407
  Receipt Date: 20140513
  Transmission Date: 20141212
  Serious: Yes (Hospitalization)
  Sender: FDA-Public Use
  Company Number: US-JNJFOC-20140401953

PATIENT
  Age: 16 Year
  Sex: Female
  Weight: 41.8 kg

DRUGS (3)
  1. REMICADE [Suspect]
     Indication: CROHN^S DISEASE
     Route: 042
     Dates: start: 20090414
  2. TYSABRI [Concomitant]
     Route: 065
  3. HUMIRA [Concomitant]
     Route: 065
     Dates: start: 20100505, end: 20131115

REACTIONS (2)
  - Malnutrition [Recovered/Resolved]
  - Crohn^s disease [Recovered/Resolved]
